FAERS Safety Report 9228653 (Version 2)
Quarter: 2013Q2

REPORT INFORMATION
  Report Type: Spontaneous
  Country: JP (occurrence: JP)
  Receive Date: 20130412
  Receipt Date: 20130419
  Transmission Date: 20140414
  Serious: Yes (Life-Threatening, Other)
  Sender: FDA-Public Use
  Company Number: JP-BRISTOL-MYERS SQUIBB COMPANY-18748905

PATIENT
  Age: 69 Year
  Sex: Male

DRUGS (12)
  1. METGLUCO [Suspect]
     Indication: DIABETES MELLITUS
     Route: 048
     Dates: end: 20130312
  2. ERYTHROCIN [Concomitant]
     Indication: BRONCHITIS CHRONIC
     Route: 048
     Dates: start: 20130312
  3. BISOLVON [Concomitant]
     Route: 048
     Dates: end: 20130312
  4. MIYA-BM [Concomitant]
     Route: 048
     Dates: end: 20130312
  5. NITRENDIPINE [Concomitant]
     Dosage: BALOTEIN
     Route: 048
     Dates: end: 20130312
  6. ENALAPRIL MALEATE [Concomitant]
     Dosage: 1DF:UNK:12M{AR13?16MAR2013-25MAR2013?LANIMEC
     Route: 048
  7. FAMOTIDINE [Concomitant]
     Route: 048
     Dates: end: 20130312
  8. GASMOTIN [Concomitant]
     Route: 048
     Dates: end: 20130312
  9. AMARYL [Concomitant]
     Dosage: 1DF:2DF,1DF?UNKN-12MAR13:2DF?16MAR13-ONG:1DF
     Route: 048
  10. MAGMITT [Concomitant]
     Route: 048
     Dates: end: 20130312
  11. SODIUM PICOSULFATE [Concomitant]
     Route: 048
  12. HUMULIN R [Concomitant]
     Dates: start: 20130312

REACTIONS (1)
  - Lactic acidosis [Recovered/Resolved]
